FAERS Safety Report 5196924-0 (Version None)
Quarter: 2006Q4

REPORT INFORMATION
  Report Type: 
  Country: None (occurrence: None)
  Receive Date: 20061227
  Receipt Date: 20061211
  Transmission Date: 20070319
  Serious: Yes (Other)
  Sender: FDA-Public Use
  Company Number: 2006153257

PATIENT
  Age: 24 Year
  Sex: Male
  Weight: 71 kg

DRUGS (6)
  1. LINEZOLID [Suspect]
     Indication: MULTIPLE-DRUG RESISTANCE
     Dosage: 600 MG (300 MG, BID:  EVERY DAY), ORAL
     Route: 048
     Dates: start: 20050607, end: 20051105
  2. CYCLOSERINE [Concomitant]
  3. ALL OTHER THERAPEUTIC PRODUCTS (ALL OTHER THERAPEUTIC PRODUCTS) [Concomitant]
  4. CLARITHROMYCIN [Concomitant]
  5. ALL OTHER THERAPEUTIC PRODUCTS (ALL OTHER THERAPEUTIC PRODUCTS) [Concomitant]
  6. AVELOX [Concomitant]

REACTIONS (2)
  - BLOOD CREATININE INCREASED [None]
  - NEUROPATHY [None]
